FAERS Safety Report 10917184 (Version 1)
Quarter: 2015Q1

REPORT INFORMATION
  Report Type: Spontaneous
  Country: SE (occurrence: SE)
  Receive Date: 20150316
  Receipt Date: 20150316
  Transmission Date: 20150721
  Serious: Yes (Hospitalization)
  Sender: FDA-Public Use
  Company Number: SE-JNJFOC-20150305812

PATIENT
  Age: 31 Year
  Sex: Female

DRUGS (19)
  1. ZOPICLONE [Concomitant]
     Active Substance: ZOPICLONE
     Route: 065
  2. BRICANYL [Concomitant]
     Active Substance: TERBUTALINE SULFATE
     Route: 065
  3. SUMATRIPTAN. [Concomitant]
     Active Substance: SUMATRIPTAN
     Route: 065
  4. ACTOS [Concomitant]
     Active Substance: PIOGLITAZONE HYDROCHLORIDE
     Route: 065
  5. DENTAN [Concomitant]
     Active Substance: SODIUM FLUORIDE
     Route: 065
  6. XARELTO [Suspect]
     Active Substance: RIVAROXABAN
     Indication: EMBOLISM VENOUS
     Route: 048
     Dates: start: 20141203, end: 20150201
  7. VENLAFAXINE [Concomitant]
     Active Substance: VENLAFAXINE HYDROCHLORIDE
     Route: 065
  8. OMEPRAZOLE. [Concomitant]
     Active Substance: OMEPRAZOLE
     Route: 065
  9. ALVEDON [Concomitant]
     Active Substance: ACETAMINOPHEN
     Route: 065
  10. PROPAVAN [Concomitant]
     Active Substance: PROPIOMAZINE
     Route: 065
  11. MEDIKINET [Concomitant]
     Active Substance: METHYLPHENIDATE
     Route: 065
  12. XANOR [Concomitant]
     Active Substance: ALPRAZOLAM
     Route: 065
     Dates: end: 20150201
  13. XARELTO [Suspect]
     Active Substance: RIVAROXABAN
     Indication: PULMONARY EMBOLISM
     Route: 048
     Dates: start: 20141203, end: 20150201
  14. COCILLANA-ETYFIN [Concomitant]
     Active Substance: ETHYLMORPHINE HYDROCHLORIDE\HERBALS
     Route: 065
  15. TRUXAL [Concomitant]
     Active Substance: CHLORPROTHIXENE
     Route: 065
     Dates: end: 20150201
  16. DETRUSITOL (TOLTERODINE TARTRATE) [Concomitant]
     Route: 065
  17. SYMBICORT [Concomitant]
     Active Substance: BUDESONIDE\FORMOTEROL FUMARATE DIHYDRATE
     Route: 065
  18. AERIUS [Concomitant]
     Active Substance: DESLORATADINE
     Route: 065
  19. NORSPAN [Concomitant]
     Active Substance: BUPRENORPHINE
     Route: 065
     Dates: end: 20150201

REACTIONS (1)
  - Hepatic failure [Recovered/Resolved]

NARRATIVE: CASE EVENT DATE: 20150201
